FAERS Safety Report 8184273-8 (Version None)
Quarter: 2012Q1

REPORT INFORMATION
  Report Type: 
  Country: None (occurrence: None)
  Receive Date: 20120305
  Receipt Date: 20120301
  Transmission Date: 20120608
  Serious: Yes (Other)
  Sender: FDA-Public Use
  Company Number: US-ABBOTT-12P-163-0909295-00

PATIENT
  Age: 16 Year
  Sex: Female

DRUGS (3)
  1. ENTOCORT EC [Concomitant]
     Indication: PRODUCT USED FOR UNKNOWN INDICATION
     Dosage: WEANED OFF WITHIN THE 1ST MONTH OR 2
  2. HUMIRA [Suspect]
     Indication: CROHN'S DISEASE
     Dates: start: 20110414
  3. ZYRTEC [Concomitant]
     Indication: PRODUCT USED FOR UNKNOWN INDICATION
     Dosage: DAILY

REACTIONS (1)
  - THYROID CANCER [None]
